FAERS Safety Report 5097000-8 (Version None)
Quarter: 2006Q3

REPORT INFORMATION
  Report Type: 
  Country: None (occurrence: None)
  Receive Date: 20060831
  Receipt Date: 20060831
  Transmission Date: 20061208
  Serious: Yes (Other)
  Sender: FDA-Public Use
  Company Number: None

PATIENT
  Age: 53 Year
  Sex: Male
  Weight: 75 kg

DRUGS (7)
  1. FLEVOX     500 MG.    SERRAL [Suspect]
     Indication: INFECTION
     Dosage: 500 MG.   1 PER DAY  PO
     Route: 048
     Dates: start: 20060818, end: 20060829
  2. AZT [Concomitant]
  3. LAMIVUDINE [Concomitant]
  4. RITONAVIR [Concomitant]
  5. SAQUINAVIR [Concomitant]
  6. PARACETAMOL [Concomitant]
  7. IBUPROFEN [Concomitant]

REACTIONS (1)
  - HEART RATE IRREGULAR [None]
